FAERS Safety Report 11218495 (Version 1)
Quarter: 2015Q2

REPORT INFORMATION
  Report Type: Spontaneous
  Country: US (occurrence: US)
  Receive Date: 20150625
  Receipt Date: 20150625
  Transmission Date: 20150821
  Serious: No
  Sender: FDA-Public Use
  Company Number: US-PFIZER INC-2015207942

PATIENT
  Age: 38 Year
  Sex: Male
  Weight: 181 kg

DRUGS (1)
  1. VIAGRA [Suspect]
     Active Substance: SILDENAFIL CITRATE
     Indication: ERECTILE DYSFUNCTION
     Dosage: 1 DF, UNK
     Dates: start: 20150620

REACTIONS (2)
  - Musculoskeletal stiffness [Unknown]
  - Foreign body [Unknown]

NARRATIVE: CASE EVENT DATE: 201506
